FAERS Safety Report 20770408 (Version 14)
Quarter: 2023Q2

REPORT INFORMATION
  Report Type: Spontaneous
  Country: US (occurrence: US)
  Receive Date: 20220429
  Receipt Date: 20230628
  Transmission Date: 20230722
  Serious: Yes (Other)
  Sender: FDA-Public Use
  Company Number: US-PFIZER INC-202200429007

PATIENT
  Age: 87 Year
  Sex: Female

DRUGS (1)
  1. IBRANCE [Suspect]
     Active Substance: PALBOCICLIB
     Indication: Neoplasm malignant
     Dosage: 1 TABLET (75MG) ONCE DAILY FOR 14 CONSECUTIVE DAYS, FOLLOWED BY 14 DAYS OFF
     Route: 048

REACTIONS (12)
  - White blood cell count decreased [Not Recovered/Not Resolved]
  - Drug dependence [Unknown]
  - Decreased immune responsiveness [Not Recovered/Not Resolved]
  - Oral pain [Unknown]
  - Asthenia [Unknown]
  - Illness [Unknown]
  - Dyspnoea [Unknown]
  - Pain [Unknown]
  - Hypoacusis [Unknown]
  - COVID-19 [Unknown]
  - Influenza [Unknown]
  - Off label use [Unknown]

NARRATIVE: CASE EVENT DATE: 20221225
